FAERS Safety Report 7972496-X (Version None)
Quarter: 2011Q4

REPORT INFORMATION
  Report Type: 
  Country: None (occurrence: None)
  Receive Date: 20111213
  Receipt Date: 20111201
  Transmission Date: 20120403
  Serious: Yes (Hospitalization, Other)
  Sender: FDA-Public Use
  Company Number: JP-PAR PHARMACEUTICAL, INC-2011SCPR003464

PATIENT

DRUGS (5)
  1. BROMAZEPAM [Suspect]
     Indication: PRODUCT USED FOR UNKNOWN INDICATION
     Dosage: 50 MG (10 TABLETS), UNKNOWN
     Route: 048
  2. TRIAZOLAM [Suspect]
     Indication: PRODUCT USED FOR UNKNOWN INDICATION
     Dosage: 3.25 MG (13 TABLETS), UNKNOWN
     Route: 048
  3. CLOXAZOLAM [Suspect]
     Indication: PRODUCT USED FOR UNKNOWN INDICATION
     Dosage: 172 MG (172 TABLETS), UNKNOWN
     Route: 048
  4. IMIPRAMINE HCL [Suspect]
     Indication: PRODUCT USED FOR UNKNOWN INDICATION
     Dosage: 3650 MG (146 TABLETS), UNKNOWN
     Route: 048
  5. FLUNITRAZEPAM [Suspect]
     Indication: PRODUCT USED FOR UNKNOWN INDICATION
     Dosage: 20 MG (10 TABLETS), UNKNOWN
     Route: 048

REACTIONS (5)
  - VENTRICULAR TACHYCARDIA [None]
  - DEPRESSED LEVEL OF CONSCIOUSNESS [None]
  - SHOCK [None]
  - CIRCULATORY COLLAPSE [None]
  - MULTIPLE DRUG OVERDOSE [None]
